FAERS Safety Report 10509620 (Version 1)
Quarter: 2014Q4

REPORT INFORMATION
  Report Type: Spontaneous
  Country: JP (occurrence: JP)
  Receive Date: 20141010
  Receipt Date: 20141010
  Transmission Date: 20150528
  Serious: Yes (Death, Disabling, Other)
  Sender: FDA-Public Use
  Company Number: JP-AMGEN-JPNSP2014078074

PATIENT
  Sex: Female

DRUGS (7)
  1. LOXONIN [Concomitant]
     Active Substance: LOXOPROFEN SODIUM
     Dosage: 60 MG, TID
     Route: 048
  2. OMEPRAL                            /00661201/ [Concomitant]
     Active Substance: OMEPRAZOLE
     Dosage: 10 MG, QD
     Route: 048
  3. VECTIBIX [Suspect]
     Active Substance: PANITUMUMAB
     Indication: COLON CANCER
     Dosage: 275 MG, UNK
     Route: 041
     Dates: start: 20101004, end: 20101122
  4. ELPLAT [Suspect]
     Active Substance: OXALIPLATIN
     Indication: COLON CANCER
     Dosage: 110 MG, QD
     Route: 041
     Dates: start: 20101004, end: 20101004
  5. 5 FU [Concomitant]
     Active Substance: FLUOROURACIL
     Indication: COLON CANCER
     Dosage: 2500 MG, UNK
     Route: 041
     Dates: start: 20101004, end: 20101108
  6. CALCIUM LEVOFOLINATE [Concomitant]
     Active Substance: LEVOLEUCOVORIN CALCIUM
     Indication: COLON CANCER
     Dosage: UNK
     Route: 041
     Dates: start: 20101004
  7. 5 FU [Concomitant]
     Active Substance: FLUOROURACIL
     Dosage: UNK
     Route: 040
     Dates: start: 20101004, end: 20101108

REACTIONS (2)
  - Neuropathy peripheral [Not Recovered/Not Resolved]
  - Colon cancer [Fatal]

NARRATIVE: CASE EVENT DATE: 20101018
